FAERS Safety Report 9729914 (Version 2)
Quarter: 2013Q4

REPORT INFORMATION
  Report Type: Spontaneous
  Country: ES (occurrence: None)
  Receive Date: 20131203
  Receipt Date: 20131220
  Transmission Date: 20140711
  Serious: Yes (Other)
  Sender: FDA-Public Use
  Company Number: AUR-APL-2013-10085

PATIENT
  Age: 41 Year
  Sex: Female

DRUGS (4)
  1. MONTELUKAST [Suspect]
     Indication: ASTHMA
     Dates: start: 201111
  2. EFAVIRENZ [Suspect]
     Indication: HIV INFECTION
     Dates: start: 2007
  3. EMTRICITABINE [Suspect]
     Indication: HIV INFECTION
     Dates: start: 2007
  4. TENOFOVIR DISOPROXIL FUMARATE [Suspect]
     Indication: HIV INFECTION
     Dates: start: 2007

REACTIONS (6)
  - Sleep disorder [None]
  - Abnormal dreams [None]
  - Irritability [None]
  - Confusional state [None]
  - Disturbance in attention [None]
  - Drug interaction [None]
